FAERS Safety Report 24077790 (Version 1)
Quarter: 2024Q3

REPORT INFORMATION
  Report Type: Spontaneous
  Country: CA (occurrence: CA)
  Receive Date: 20240711
  Receipt Date: 20240711
  Transmission Date: 20241016
  Serious: Yes (Hospitalization)
  Sender: UCB
  Company Number: CA-UCBSA-2024035017

PATIENT
  Age: 72 Year
  Sex: Male

DRUGS (1)
  1. KEPPRA [Suspect]
     Active Substance: LEVETIRACETAM
     Indication: Product used for unknown indication
     Dosage: 500 MILLIGRAM, 2X/DAY (BID)
     Route: 048

REACTIONS (2)
  - Paranoia [Recovering/Resolving]
  - Personality change [Recovering/Resolving]
